FAERS Safety Report 16385313 (Version 3)
Quarter: 2019Q3

REPORT INFORMATION
  Report Type: Report from Study
  Country: NL (occurrence: NL)
  Receive Date: 20190603
  Receipt Date: 20190720
  Transmission Date: 20191004
  Serious: Yes (Death, Hospitalization, Other)
  Sender: FDA-Public Use
  Company Number: NL-BRISTOL-MYERS SQUIBB COMPANY-BMS-2019-051409

PATIENT
  Age: 68 Year
  Sex: Male
  Weight: 83 kg

DRUGS (7)
  1. FOLIC ACID. [Concomitant]
     Active Substance: FOLIC ACID
     Indication: PRODUCT USED FOR UNKNOWN INDICATION
     Dosage: UNK
     Route: 065
  2. PARACETAMOL [Concomitant]
     Active Substance: ACETAMINOPHEN
     Indication: PRODUCT USED FOR UNKNOWN INDICATION
     Dosage: UNK
     Route: 065
  3. ATORVASTATIN [Concomitant]
     Active Substance: ATORVASTATIN
     Indication: PRODUCT USED FOR UNKNOWN INDICATION
     Dosage: 40 MILLIGRAM
     Route: 048
     Dates: start: 2000
  4. NIVOLUMAB [Suspect]
     Active Substance: NIVOLUMAB
     Indication: PLEURAL MESOTHELIOMA
     Dosage: 3 MILLIGRAM/KILOGRAM
     Route: 065
     Dates: start: 20190301
  5. NIVOLUMAB [Suspect]
     Active Substance: NIVOLUMAB
     Indication: PRODUCT USED FOR UNKNOWN INDICATION
     Dosage: 224 MILLIGRAM, Q2WK
     Route: 042
     Dates: start: 20190430
  6. CARBASALAATCALCIUM [Concomitant]
     Active Substance: CARBASPIRIN CALCIUM
     Indication: PRODUCT USED FOR UNKNOWN INDICATION
     Dosage: 80 MILLIGRAM 1D
     Route: 048
     Dates: start: 2000
  7. METOPROLOL. [Concomitant]
     Active Substance: METOPROLOL
     Indication: PRODUCT USED FOR UNKNOWN INDICATION
     Dosage: 50 MILLIGRAM
     Route: 048
     Dates: start: 2000

REACTIONS (5)
  - Anaemia [Unknown]
  - Abdominal pain [Fatal]
  - Ascites [Unknown]
  - Thrombocytopenia [Fatal]
  - Intentional product use issue [Unknown]

NARRATIVE: CASE EVENT DATE: 20190416
